FAERS Safety Report 6419030-3 (Version None)
Quarter: 2009Q4

REPORT INFORMATION
  Report Type: 
  Country: None (occurrence: None)
  Receive Date: 20091029
  Receipt Date: 20091021
  Transmission Date: 20100525
  Serious: Yes (Hospitalization, Other)
  Sender: FDA-Public Use
  Company Number: US-ASTRAZENECA-2007UW19285

PATIENT
  Age: 39 Year
  Sex: Male
  Weight: 89.8 kg

DRUGS (22)
  1. SEROQUEL [Suspect]
     Indication: SLEEP DISORDER
     Route: 048
     Dates: start: 20000101, end: 20070201
  2. SEROQUEL [Suspect]
     Indication: BIPOLAR DISORDER
     Route: 048
     Dates: start: 20000101, end: 20070201
  3. SEROQUEL [Suspect]
     Dosage: 50- 800 MG
     Route: 048
  4. SEROQUEL [Suspect]
     Dosage: 50- 800 MG
     Route: 048
  5. PAXIL [Concomitant]
     Dosage: 20 MG, 30 MG, 40 MG, 50 MG DAILY
     Route: 048
     Dates: start: 20000101
  6. PROTONIX [Concomitant]
     Route: 048
     Dates: start: 20040206
  7. TOPROL-XL [Concomitant]
     Dosage: 25-100 MG
     Route: 048
  8. NEURONTIN [Concomitant]
     Indication: NEURALGIA
     Route: 048
  9. KLONOPIN [Concomitant]
     Dosage: 1-4 MG
     Route: 048
     Dates: start: 20000101
  10. LIPITOR [Concomitant]
     Dosage: 10-40 MG DAILY
     Route: 048
  11. LOPRESSOR [Concomitant]
     Dosage: 25-100 MG
     Route: 048
  12. ASPIRIN [Concomitant]
     Dosage: 81-162 MG, EVERY DAY
     Route: 048
  13. ACCUPRIL [Concomitant]
     Dosage: 2.5-40 MG, EVERY DAY
     Route: 048
  14. HYDROXYZINE [Concomitant]
     Route: 048
  15. PLAVIX [Concomitant]
     Route: 048
  16. TRICOR [Concomitant]
     Route: 048
  17. PRINIVIL [Concomitant]
     Route: 048
  18. LEVAQUIN [Concomitant]
     Dosage: 500-750 MG, DAILY
     Route: 048
  19. METFORMIN HCL [Concomitant]
     Indication: HYPERGLYCAEMIA
     Dosage: 500-1000 MG, TWO TIMES A DAY
     Route: 065
     Dates: start: 20060101
  20. GLUCOTROL XL [Concomitant]
     Route: 065
  21. PANCREASE [Concomitant]
     Route: 048
  22. RISPERDAL [Concomitant]
     Indication: BIPOLAR DISORDER

REACTIONS (8)
  - BLOOD CHOLESTEROL INCREASED [None]
  - BLOOD TRIGLYCERIDES INCREASED [None]
  - DIABETES MELLITUS [None]
  - DIABETIC KETOACIDOSIS [None]
  - HYPERLIPIDAEMIA [None]
  - MYOCARDIAL INFARCTION [None]
  - PANCREATITIS ACUTE [None]
  - TYPE 2 DIABETES MELLITUS [None]
